FAERS Safety Report 6108408-3 (Version None)
Quarter: 2009Q1

REPORT INFORMATION
  Report Type: 
  Country: None (occurrence: None)
  Receive Date: 20090309
  Receipt Date: 20090302
  Transmission Date: 20090719
  Serious: Yes (Life-Threatening, Other)
  Sender: FDA-Public Use
  Company Number: PHHY2009DE07497

PATIENT
  Age: 76 Year
  Sex: Male

DRUGS (7)
  1. FLUVASTATIN [Suspect]
     Indication: HYPERCHOLESTEROLAEMIA
     Dosage: 80 MG, QD
     Route: 048
     Dates: end: 20081125
  2. AMARYL [Suspect]
     Indication: TYPE 2 DIABETES MELLITUS
     Dosage: 1MG PER DAY
     Route: 048
     Dates: start: 20071201, end: 20081126
  3. ASPIRIN [Suspect]
     Indication: PROPHYLAXIS
     Dosage: 100MG PER DAY
     Route: 048
     Dates: start: 20081126
  4. DELIX [Suspect]
     Indication: HYPERTENSION
     Dosage: 2.5MG PER DAY
     Route: 048
  5. METFORMIN [Suspect]
     Indication: TYPE 2 DIABETES MELLITUS
     Dosage: 1000MG 2 IN DAY
     Route: 048
     Dates: start: 20071201, end: 20081126
  6. BELOC ZOK [Concomitant]
     Indication: HYPERTENSION
  7. BERLTHYROX [Concomitant]
     Indication: HYPOTHYROIDISM
     Dosage: 75UG PER DAY
     Route: 048

REACTIONS (16)
  - ALANINE AMINOTRANSFERASE INCREASED [None]
  - ASPARTATE AMINOTRANSFERASE INCREASED [None]
  - BLOOD CREATININE INCREASED [None]
  - BLOOD FIBRINOGEN INCREASED [None]
  - CONTINUOUS HAEMODIAFILTRATION [None]
  - FALL [None]
  - HYPERKALAEMIA [None]
  - HYPOGLYCAEMIA [None]
  - INTERNATIONAL NORMALISED RATIO INCREASED [None]
  - LOSS OF CONSCIOUSNESS [None]
  - MYOGLOBIN BLOOD INCREASED [None]
  - PLATELET COUNT DECREASED [None]
  - PROTHROMBIN TIME [None]
  - RENAL FAILURE ACUTE [None]
  - RHABDOMYOLYSIS [None]
  - TREMOR [None]
